FAERS Safety Report 8821191 (Version 3)
Quarter: 2013Q1

REPORT INFORMATION
  Report Type: Spontaneous
  Country: US (occurrence: US)
  Receive Date: 20121002
  Receipt Date: 20130111
  Transmission Date: 20140127
  Serious: No
  Sender: FDA-Public Use
  Company Number: US-ASTRAZENECA-2012SE74638

PATIENT
  Age: 49 Year
  Sex: Female

DRUGS (2)
  1. NEXIUM [Suspect]
     Route: 048
  2. PEPCID [Concomitant]

REACTIONS (7)
  - Gastrooesophageal reflux disease [Unknown]
  - Dyspnoea [Unknown]
  - Choking [Unknown]
  - Insomnia [Unknown]
  - Multiple sclerosis [Unknown]
  - Aphagia [Unknown]
  - Drug dose omission [Unknown]
